FAERS Safety Report 6858090-2 (Version None)
Quarter: 2010Q3

REPORT INFORMATION
  Report Type: 
  Country: None (occurrence: None)
  Receive Date: 20100719
  Receipt Date: 20080419
  Transmission Date: 20110219
  Serious: No
  Sender: FDA-Public Use
  Company Number: US-PFIZER INC-2008010363

PATIENT
  Sex: Male
  Weight: 90.9 kg

DRUGS (11)
  1. CHANTIX [Suspect]
     Indication: TOBACCO ABUSE
     Route: 048
     Dates: start: 20080114
  2. AMANTADINE HCL [Concomitant]
     Route: 048
  3. PRAZOSIN [Concomitant]
     Route: 048
  4. NEURONTIN [Concomitant]
     Route: 048
  5. TEGRETOL [Concomitant]
     Route: 048
  6. ETODOLAC [Concomitant]
     Route: 048
  7. ATENOLOL [Concomitant]
     Route: 048
  8. FOSINOPRIL SODIUM [Concomitant]
     Route: 048
  9. GEMFIBROZIL [Concomitant]
     Route: 048
  10. BACLOFEN [Concomitant]
     Route: 048
  11. COPAXONE [Concomitant]

REACTIONS (1)
  - INCORRECT DOSE ADMINISTERED [None]
